FAERS Safety Report 25165162 (Version 3)
Quarter: 2025Q3

REPORT INFORMATION
  Report Type: Spontaneous
  Country: IL (occurrence: IL)
  Receive Date: 20250407
  Receipt Date: 20250902
  Transmission Date: 20251021
  Serious: Yes (Other)
  Sender: AMGEN
  Company Number: IL-AMGEN-ISRSP2025038990

PATIENT

DRUGS (1)
  1. ADALIMUMAB [Suspect]
     Active Substance: ADALIMUMAB
     Indication: Crohn^s disease
     Dosage: UNK MILLIGRAM, QWK
     Route: 058

REACTIONS (7)
  - Uveitis [Recovered/Resolved]
  - Therapy non-responder [Unknown]
  - Therapy partial responder [Unknown]
  - Eczema [Unknown]
  - Dermatitis psoriasiform [Unknown]
  - Arthralgia [Recovered/Resolved]
  - Sacroiliitis [Recovered/Resolved]
